FAERS Safety Report 9641157 (Version 4)
Quarter: 2013Q4

REPORT INFORMATION
  Report Type: Spontaneous
  Country: JP (occurrence: JP)
  Receive Date: 20131023
  Receipt Date: 20131211
  Transmission Date: 20140711
  Serious: Yes (Other)
  Sender: FDA-Public Use
  Company Number: JP-PFIZER INC-2013299109

PATIENT
  Age: 4 Year
  Sex: Female
  Weight: 11.8 kg

DRUGS (7)
  1. GENOTROPIN GOQUICK [Suspect]
     Indication: GROWTH HORMONE DEFICIENCY
     Dosage: 0.45 MG, 1X/DAY
     Route: 058
     Dates: start: 20121025
  2. GENOTROPIN GOQUICK [Suspect]
     Indication: DWARFISM
  3. CORTRIL [Concomitant]
     Indication: ADRENAL INSUFFICIENCY
     Dosage: AT 0.2 TO 0.5 MG TWICE DAILY
     Route: 048
     Dates: start: 20120822
  4. DESMOPRESSIN [Concomitant]
     Indication: DIABETES INSIPIDUS
     Dosage: 2.5 UG, 2X/DAY
     Route: 045
     Dates: start: 20120829
  5. THYRADIN-S [Concomitant]
     Indication: POST PROCEDURAL HYPOTHYROIDISM
     Dosage: 75 UG, 1X/DAY
     Route: 048
     Dates: start: 20120822
  6. PHENOBAL [Concomitant]
     Indication: EPILEPSY
     Dosage: 30 MG, 2X/DAY
     Route: 048
     Dates: start: 20121106
  7. METHYCOBAL [Concomitant]
     Indication: OPTIC NERVE DISORDER
     Dosage: 500 UG, 1X/DAY
     Route: 048
     Dates: start: 20130625

REACTIONS (2)
  - Craniopharyngioma [Not Recovered/Not Resolved]
  - Neoplasm recurrence [Not Recovered/Not Resolved]
